FAERS Safety Report 7189406-8 (Version None)
Quarter: 2010Q4

REPORT INFORMATION
  Report Type: 
  Country: None (occurrence: None)
  Receive Date: 20101222
  Receipt Date: 20101213
  Transmission Date: 20110411
  Serious: Yes (Hospitalization)
  Sender: FDA-Public Use
  Company Number: JP-AMGEN-JPNCT2010010220

PATIENT

DRUGS (22)
  1. PANITUMUMAB [Suspect]
     Indication: COLORECTAL CANCER
     Dosage: 6 MG/KG, Q2WK
     Route: 041
     Dates: start: 20101012, end: 20101025
  2. CORTICOSTEROIDS [Concomitant]
     Indication: PROPHYLAXIS
     Route: 065
  3. IRINOTECAN HYDROCHLORIDE [Concomitant]
     Indication: COLORECTAL CANCER
     Route: 041
     Dates: start: 20101012
  4. FLUOROURACIL [Concomitant]
     Indication: COLORECTAL CANCER
     Route: 041
     Dates: start: 20101012
  5. CALCIUM LEVOFOLINATE [Concomitant]
     Indication: COLORECTAL CANCER
     Route: 041
     Dates: start: 20101012
  6. KYTRIL [Concomitant]
     Route: 042
  7. PRIMPERAN TAB [Concomitant]
     Route: 042
  8. EMEND [Concomitant]
     Route: 048
  9. HYPEN [Concomitant]
     Route: 048
  10. MYONAL [Concomitant]
     Route: 048
  11. NAUZELIN [Concomitant]
     Route: 048
  12. ITOROL [Concomitant]
     Route: 048
  13. MEVALOTIN [Concomitant]
     Route: 048
  14. MAINTATE [Concomitant]
     Route: 048
  15. YAKUBAN [Concomitant]
     Route: 062
  16. AZOPT [Concomitant]
     Route: 047
  17. PARIET [Concomitant]
     Route: 048
  18. AMLODIN [Concomitant]
     Route: 048
  19. DIOVAN [Concomitant]
     Route: 048
  20. DETANTOL [Concomitant]
     Route: 048
  21. PROCYLIN [Concomitant]
     Route: 048
  22. XALATAN [Concomitant]
     Route: 047

REACTIONS (2)
  - CATARACT [None]
  - RASH [None]
